FAERS Safety Report 26145022 (Version 1)
Quarter: 2025Q4

REPORT INFORMATION
  Report Type: Spontaneous
  Country: US (occurrence: US)
  Receive Date: 20251211
  Receipt Date: 20251211
  Transmission Date: 20260118
  Serious: Yes (Life-Threatening)
  Sender: CELLTRION
  Company Number: US-CELLTRION INC.-2025US003898

PATIENT

DRUGS (2)
  1. RITUXIMAB [Suspect]
     Active Substance: RITUXIMAB
     Indication: Hairy cell leukaemia
     Dosage: UNK
  2. FLUDARABINE [Suspect]
     Active Substance: FLUDARABINE PHOSPHATE
     Indication: Hairy cell leukaemia
     Dosage: UNK

REACTIONS (2)
  - Hypersensitivity [Unknown]
  - Intentional product use issue [Unknown]
